FAERS Safety Report 4723257-6 (Version None)
Quarter: 2005Q3

REPORT INFORMATION
  Report Type: 
  Country: None (occurrence: None)
  Receive Date: 20050719
  Receipt Date: 20040903
  Transmission Date: 20060218
  Serious: Yes (Hospitalization)
  Sender: FDA-Public Use
  Company Number: 204219

PATIENT
  Age: 43 Year
  Sex: Female
  Weight: 71.6683 kg

DRUGS (2)
  1. AVONEX [Suspect]
     Indication: MULTIPLE SCLEROSIS
     Dosage: 30 UG; QW; IM
     Route: 030
     Dates: start: 20010701
  2. B12 VITAMIN [Concomitant]

REACTIONS (2)
  - INSOMNIA [None]
  - MULTIPLE SCLEROSIS RELAPSE [None]
